FAERS Safety Report 15960822 (Version 1)
Quarter: 2019Q1

REPORT INFORMATION
  Report Type: Spontaneous
  Country: US (occurrence: US)
  Receive Date: 20190214
  Receipt Date: 20190214
  Transmission Date: 20190417
  Serious: No
  Sender: FDA-Public Use
  Company Number: US-PFIZER INC-2019065173

PATIENT
  Age: 5 Decade
  Sex: Female

DRUGS (1)
  1. CRISABOROLE [Suspect]
     Active Substance: CRISABOROLE
     Indication: LIP DRY
     Dosage: UNK

REACTIONS (2)
  - Product use in unapproved indication [Unknown]
  - Application site pain [Unknown]
